FAERS Safety Report 13001290 (Version 1)
Quarter: 2016Q4

REPORT INFORMATION
  Report Type: Spontaneous
  Country: NL (occurrence: NL)
  Receive Date: 20161206
  Receipt Date: 20161206
  Transmission Date: 20170207
  Serious: Yes (Other)
  Sender: FDA-Public Use
  Company Number: NL-CLINIGEN GROUP PLC/ CLINIGEN HEALTHCARE LTD-E2B_00001792

PATIENT
  Age: 3 Year
  Sex: Male
  Weight: 17 kg

DRUGS (6)
  1. ADRIAMYCIN [Concomitant]
     Active Substance: DOXORUBICIN HYDROCHLORIDE
     Dosage: 20MG/M2/DAYX3 2 MONTH(S)
     Route: 065
     Dates: start: 19961022, end: 19961206
  2. ETHYOL [Suspect]
     Active Substance: AMIFOSTINE
     Indication: ADVERSE DRUG REACTION
     Dosage: 740 MG/M2X2 1 MONTH(S)
     Route: 042
     Dates: start: 19961022, end: 19961127
  3. MESNA. [Concomitant]
     Active Substance: MESNA
     Dosage: 3000MG/M2/DAY  CONTINUING
     Route: 065
     Dates: start: 19961022
  4. IFOSFAMIDE. [Concomitant]
     Active Substance: IFOSFAMIDE
     Dosage: CONTINUING
     Route: 042
     Dates: start: 19961022
  5. VINCRISTINE [Concomitant]
     Active Substance: VINCRISTINE
     Dosage: 1.5 MG/M2
     Route: 065
     Dates: start: 19961022
  6. ACTINOMYCIN D [Concomitant]
     Active Substance: DACTINOMYCIN
     Dosage: 500MCG/M2X3D
     Route: 065
     Dates: start: 19961022

REACTIONS (1)
  - Renal tubular disorder [Unknown]

NARRATIVE: CASE EVENT DATE: 19961118
